FAERS Safety Report 21365762 (Version 2)
Quarter: 2022Q3

REPORT INFORMATION
  Report Type: Spontaneous
  Country: SE (occurrence: SE)
  Receive Date: 20220922
  Receipt Date: 20220926
  Transmission Date: 20221027
  Serious: No
  Sender: FDA-Public Use
  Company Number: SE-BAXTER-2022BAX019802

PATIENT
  Age: 57 Year
  Sex: Female

DRUGS (6)
  1. CLINIMIX E [Suspect]
     Active Substance: ALANINE\AMINO ACIDS\ARGININE\CALCIUM CHLORIDE\DEXTROSE\GLYCINE\HISTIDINE\ISOLEUCINE\LEUCINE\LYSINE\M
     Indication: Parenteral nutrition
     Dosage: UNK
     Route: 065
  2. CLINIMIX E [Suspect]
     Active Substance: ALANINE\AMINO ACIDS\ARGININE\CALCIUM CHLORIDE\DEXTROSE\GLYCINE\HISTIDINE\ISOLEUCINE\LEUCINE\LYSINE\M
     Dosage: UNK
     Route: 042
     Dates: start: 20220913, end: 20220913
  3. OMEPRAZOLE [Concomitant]
     Active Substance: OMEPRAZOLE
     Indication: Ulcer
     Dosage: ADMINSIRATION START DATE: SINCE LONG
     Route: 048
  4. D3 VICOTRAT [Concomitant]
     Dosage: ADMINISTRATION START DATE: SINCE LONG
     Route: 042
  5. MAGNESIUM HYDROXIDE [Concomitant]
     Active Substance: MAGNESIUM HYDROXIDE
     Dosage: ADMINSTRATION START DATE: SINCE LONG
     Route: 048
  6. METHADONE HYDROCHLORIDE [Concomitant]
     Active Substance: METHADONE HYDROCHLORIDE
     Dosage: ADMINSRTRATION START DATE: SINCE LONG
     Route: 048

REACTIONS (1)
  - Muscle spasms [Recovered/Resolved]

NARRATIVE: CASE EVENT DATE: 20220913
